FAERS Safety Report 4670340-X (Version None)
Quarter: 2005Q2

REPORT INFORMATION
  Report Type: 
  Country: None (occurrence: None)
  Receive Date: 20050520
  Receipt Date: 20050511
  Transmission Date: 20051028
  Serious: Yes (Death)
  Sender: FDA-Public Use
  Company Number: 05H-163-0299126-00

PATIENT
  Age: 55 Year
  Sex: Female

DRUGS (2)
  1. MORPHINE SULFATE [Suspect]
     Indication: POST PROCEDURAL PAIN
     Dosage: SEE IMAGE
     Route: 042
     Dates: start: 20050509, end: 20050509
  2. MORPHINE SULFATE [Suspect]
     Indication: POST PROCEDURAL PAIN
     Dosage: SEE IMAGE
     Route: 042
     Dates: start: 20050510, end: 20050510

REACTIONS (1)
  - SUDDEN DEATH [None]
